FAERS Safety Report 7123021-7 (Version None)
Quarter: 2010Q4

REPORT INFORMATION
  Report Type: 
  Country: None (occurrence: None)
  Receive Date: 20101125
  Receipt Date: 20101103
  Transmission Date: 20110411
  Serious: Yes (Other)
  Sender: FDA-Public Use
  Company Number: CO-AMGEN-COLCT2010003884

PATIENT

DRUGS (6)
  1. ETANERCEPT [Suspect]
     Indication: PRODUCT USED FOR UNKNOWN INDICATION
     Dosage: 1 APPLICATION A WEEK
     Dates: start: 20070101
  2. NITROGEN, LIQUID [Concomitant]
  3. ACETAMINOPHEN [Concomitant]
  4. CHLOROQUINE PHOSPHATE [Concomitant]
  5. RANITIDINE [Concomitant]
  6. MARIGOLD [Concomitant]

REACTIONS (2)
  - CHEST PAIN [None]
  - DYSPNOEA [None]
